FAERS Safety Report 4352396-7 (Version None)
Quarter: 2004Q2

REPORT INFORMATION
  Report Type: 
  Country: None (occurrence: None)
  Receive Date: 20040504
  Receipt Date: 20040428
  Transmission Date: 20050107
  Serious: Yes (Hospitalization)
  Sender: FDA-Public Use
  Company Number: 200411726FR

PATIENT
  Age: 77 Year
  Sex: Male
  Weight: 80 kg

DRUGS (6)
  1. DAONIL [Suspect]
     Indication: DIABETES MELLITUS NON-INSULIN-DEPENDENT
     Route: 048
  2. SPASFON [Suspect]
     Route: 048
  3. PARACETAMOL [Suspect]
     Route: 048
  4. DEROXAT [Suspect]
     Indication: DEPRESSION
     Route: 048
     Dates: start: 20040326, end: 20040329
  5. CHIBRO-PROSCAR [Suspect]
     Indication: PROSTATIC ADENOMA
     Route: 048
  6. LOPERAMIDE HCL [Suspect]
     Indication: DIARRHOEA
     Route: 048
     Dates: start: 20040326, end: 20040404

REACTIONS (14)
  - ABDOMINAL DISTENSION [None]
  - CARDIAC FAILURE [None]
  - DEPRESSION [None]
  - DIARRHOEA [None]
  - FACE OEDEMA [None]
  - FATIGUE [None]
  - HYPOPROTEINAEMIA [None]
  - MOOD ALTERED [None]
  - NEPHROTIC SYNDROME [None]
  - OEDEMA PERIPHERAL [None]
  - PROTEINURIA [None]
  - TEARFULNESS [None]
  - WEIGHT DECREASED [None]
  - WEIGHT INCREASED [None]
